FAERS Safety Report 17075196 (Version 2)
Quarter: 2019Q4

REPORT INFORMATION
  Report Type: Spontaneous
  Country: JP (occurrence: JP)
  Receive Date: 20191126
  Receipt Date: 20191202
  Transmission Date: 20200122
  Serious: Yes (Life-Threatening, Hospitalization)
  Sender: FDA-Public Use
  Company Number: JP-PFIZER INC-2019505950

PATIENT
  Age: 46 Year
  Sex: Female

DRUGS (2)
  1. OXALIPLATIN. [Suspect]
     Active Substance: OXALIPLATIN
     Indication: RECTAL CANCER STAGE III
     Dosage: 200 MG, CYCLIC ON DAY 0
     Dates: start: 201707
  2. CAPECITABINE. [Concomitant]
     Active Substance: CAPECITABINE
     Indication: COLORECTAL CANCER STAGE III
     Dosage: 1500 MG, 2X/DAY (DAY 0 EVENING- DAY 14 MORNING)
     Dates: start: 201707

REACTIONS (4)
  - Venoocclusive liver disease [Recovering/Resolving]
  - Thrombocytopenia [Recovering/Resolving]
  - Drug-induced liver injury [Recovering/Resolving]
  - Anaphylactic reaction [Recovering/Resolving]

NARRATIVE: CASE EVENT DATE: 2017
